FAERS Safety Report 8583808-0 (Version None)
Quarter: 2012Q3

REPORT INFORMATION
  Report Type: 
  Country: None (occurrence: None)
  Receive Date: 20120810
  Receipt Date: 20120730
  Transmission Date: 20120928
  Serious: Yes (Hospitalization, Other)
  Sender: FDA-Public Use
  Company Number: US-009507513-1208USA000642

PATIENT

DRUGS (10)
  1. SIMVASTATIN [Suspect]
     Indication: ACUTE CORONARY SYNDROME
     Dosage: UNK
     Route: 048
     Dates: start: 20070804
  2. BLINDED THERAPY [Suspect]
     Indication: ACUTE CORONARY SYNDROME
     Dosage: UNK
     Route: 048
     Dates: start: 20070804
  3. PLACEBO [Suspect]
     Indication: ACUTE CORONARY SYNDROME
     Dosage: UNK
     Route: 048
     Dates: start: 20070804
  4. BLINDED POST TRIAL THERAPY [Suspect]
     Indication: ACUTE CORONARY SYNDROME
     Dosage: UNK
     Route: 048
     Dates: start: 20070804
  5. ASPIRIN [Concomitant]
     Dosage: UNK MG, UNK
     Route: 048
     Dates: start: 20120718
  6. RAMIPRIL [Concomitant]
     Dosage: UNK MG, UNK
     Route: 048
     Dates: start: 20100721
  7. METOPROLOL TARTRATE [Concomitant]
     Dosage: UNK MG, UNK
     Route: 048
     Dates: start: 20070806
  8. BLINDED EZETIMIBE (+) SIMVASTATIN [Suspect]
     Indication: ACUTE CORONARY SYNDROME
     Dosage: UNK
     Route: 048
     Dates: start: 20070804
  9. CLOPIDOGREL [Concomitant]
     Dosage: UNK MG, UNK
     Route: 048
     Dates: start: 20070806
  10. BLINDED PRE TRIAL THERAPY [Suspect]
     Indication: ACUTE CORONARY SYNDROME
     Dosage: UNK
     Route: 048
     Dates: start: 20070804

REACTIONS (4)
  - MESENTERIC NEOPLASM [None]
  - PYELONEPHRITIS ACUTE [None]
  - PLEURAL EFFUSION [None]
  - BACTERAEMIA [None]
